FAERS Safety Report 4887050-6 (Version None)
Quarter: 2006Q1

REPORT INFORMATION
  Report Type: 
  Country: None (occurrence: None)
  Receive Date: 20060118
  Receipt Date: 20060104
  Transmission Date: 20060701
  Serious: Yes (Hospitalization)
  Sender: FDA-Public Use
  Company Number: 006062

PATIENT
  Age: 82 Year
  Sex: Female
  Weight: 50.5 kg

DRUGS (7)
  1. ZIAC [Suspect]
     Dates: start: 20040101, end: 20051003
  2. DEMADEX [Suspect]
     Dates: start: 20050901, end: 20051003
  3. EFFEXOR [Suspect]
     Dates: end: 20050101
  4. LEXAPRO [Suspect]
     Indication: DEPRESSION
     Dates: start: 20050907, end: 20051003
  5. NORVASC [Concomitant]
  6. SEROQUEL [Concomitant]
  7. ASPIRIN [Concomitant]

REACTIONS (16)
  - ACUTE PRERENAL FAILURE [None]
  - AGITATION [None]
  - ANAEMIA [None]
  - CONDITION AGGRAVATED [None]
  - DEPRESSION [None]
  - HYPERTENSION [None]
  - HYPOVOLAEMIA [None]
  - INAPPROPRIATE ANTIDIURETIC HORMONE SECRETION [None]
  - METABOLIC ALKALOSIS [None]
  - NEPHROSCLEROSIS [None]
  - OBSESSIVE-COMPULSIVE DISORDER [None]
  - ORAL INTAKE REDUCED [None]
  - PARANOIA [None]
  - TREMOR [None]
  - WEIGHT DECREASED [None]
  - WHITE BLOOD CELL COUNT INCREASED [None]
